FAERS Safety Report 5010652-3 (Version None)
Quarter: 2006Q2

REPORT INFORMATION
  Report Type: 
  Country: None (occurrence: None)
  Receive Date: 20060525
  Receipt Date: 20060517
  Transmission Date: 20061013
  Serious: Yes (Other)
  Sender: FDA-Public Use
  Company Number: PHBS2006BR07443

PATIENT
  Age: 44 Year
  Sex: Male

DRUGS (3)
  1. CLOZAPINE [Suspect]
     Indication: SCHIZOPHRENIA, PARANOID TYPE
     Dosage: 200 MG/D
     Route: 065
     Dates: start: 19950701
  2. CLOZAPINE [Suspect]
     Dosage: 150 MG/D
     Route: 065
  3. METFORMIN [Concomitant]
     Indication: DIABETES MELLITUS NON-INSULIN-DEPENDENT

REACTIONS (9)
  - DIABETES MELLITUS NON-INSULIN-DEPENDENT [None]
  - FATIGUE [None]
  - HYPERLIPIDAEMIA [None]
  - IDEAS OF REFERENCE [None]
  - OBESITY [None]
  - OBSESSIVE-COMPULSIVE DISORDER [None]
  - SEDATION [None]
  - SLEEP APNOEA SYNDROME [None]
  - SUSPICIOUSNESS [None]
